FAERS Safety Report 8236967-3 (Version None)
Quarter: 2012Q1

REPORT INFORMATION
  Report Type: 
  Country: None (occurrence: None)
  Receive Date: 20120327
  Receipt Date: 20120320
  Transmission Date: 20120608
  Serious: Yes (Life-Threatening, Other)
  Sender: FDA-Public Use
  Company Number: US-CELGENEUS-163-21880-12012490

PATIENT
  Sex: Female

DRUGS (7)
  1. ULTRAM [Concomitant]
     Route: 065
  2. REMERON [Concomitant]
     Dosage: 15 MILLIGRAM
     Route: 065
     Dates: start: 20111027
  3. REVLIMID [Suspect]
     Indication: MULTIPLE MYELOMA
     Dosage: 25 MILLIGRAM
     Route: 048
     Dates: start: 20111014, end: 20120203
  4. LORTAB [Concomitant]
     Route: 065
  5. M.V.I. [Concomitant]
     Route: 065
     Dates: start: 20110922
  6. CALCIUM WITH VITAMIN D [Concomitant]
     Dosage: 750 MILLIGRAM
     Route: 065
     Dates: start: 20110922
  7. MEGACE [Concomitant]
     Route: 065
     Dates: start: 20111206

REACTIONS (2)
  - THROMBOSIS [None]
  - PETECHIAE [None]
